FAERS Safety Report 4267129-2 (Version None)
Quarter: 2004Q1

REPORT INFORMATION
  Report Type: 
  Country: None (occurrence: None)
  Receive Date: 20040107
  Receipt Date: 20031223
  Transmission Date: 20041129
  Serious: Yes (Hospitalization)
  Sender: FDA-Public Use
  Company Number: A06200300099

PATIENT
  Age: 68 Year
  Sex: Female

DRUGS (4)
  1. PLAQUENIL [Suspect]
     Indication: RHEUMATOID ARTHRITIS
     Dosage: 200 MG OD, ORAL
     Route: 048
     Dates: start: 20031128, end: 20031205
  2. LACIPIL (LACIDIPINE) [Concomitant]
  3. TICLOPIDINA (TICLOPIIDNE) [Concomitant]
  4. LOSAPREX (LOSARTAN POTASSIUM) [Concomitant]

REACTIONS (2)
  - ERYTHEMA MULTIFORME [None]
  - RENAL FAILURE ACUTE [None]
